FAERS Safety Report 7942766-X (Version None)
Quarter: 2011Q4

REPORT INFORMATION
  Report Type: 
  Country: None (occurrence: None)
  Receive Date: 20111114
  Receipt Date: 20110106
  Transmission Date: 20120403
  Serious: Yes (Hospitalization, Other)
  Sender: FDA-Public Use
  Company Number: 2011S1000018

PATIENT
  Age: 72 Year
  Sex: Male
  Weight: 100 kg

DRUGS (9)
  1. FUROSEMIDE [Concomitant]
  2. CUBICIN [Suspect]
     Dosage: 10 MG/KG;Q24H;IV
     Route: 042
     Dates: start: 20101221, end: 20101229
  3. VANCOMYCIN [Concomitant]
  4. CLOPIDOGREL [Concomitant]
  5. IMIPENEM [Concomitant]
  6. OXYCODONE HCL [Concomitant]
  7. PERCOCET [Concomitant]
  8. ALLOPURINOL [Concomitant]
  9. ASPIRIN [Concomitant]

REACTIONS (1)
  - EOSINOPHILIC PNEUMONIA [None]
